FAERS Safety Report 12171372 (Version 4)
Quarter: 2016Q3

REPORT INFORMATION
  Report Type: Spontaneous
  Country: US (occurrence: US)
  Receive Date: 20160311
  Receipt Date: 20160725
  Transmission Date: 20161109
  Serious: No
  Sender: FDA-Public Use
  Company Number: US-PFIZER INC-2014067068

PATIENT
  Age: 65 Year
  Sex: Female
  Weight: 110 kg

DRUGS (20)
  1. LYRICA [Suspect]
     Active Substance: PREGABALIN
     Indication: MONONEUROPATHY
  2. LIDOCAINE HCL [Concomitant]
     Active Substance: LIDOCAINE HYDROCHLORIDE
     Dosage: 1 %, UNK
  3. LIDOCAINE W/PRILOCAINE [Concomitant]
     Dosage: UNK
     Route: 061
  4. PREMARIN [Concomitant]
     Active Substance: ESTROGENS, CONJUGATED
     Dosage: UNK
  5. MYCOSTATIN [Concomitant]
     Active Substance: NYSTATIN
     Dosage: 100000 IU/ML, UNK
  6. DITROPAN XL [Concomitant]
     Active Substance: OXYBUTYNIN CHLORIDE
     Dosage: 5 MG, UNK (24 HR )
  7. ZOLPIDEM [Concomitant]
     Active Substance: ZOLPIDEM\ZOLPIDEM TARTRATE
     Dosage: 1 OR 2, 5MG MONTHLY
  8. LYRICA [Suspect]
     Active Substance: PREGABALIN
     Indication: FIBROMYALGIA
  9. VOLTAREN [Concomitant]
     Active Substance: DICLOFENAC SODIUM
     Dosage: 50 MG, UNK
  10. PRILOCAINE [Concomitant]
     Active Substance: PRILOCAINE
     Dosage: UNK
  11. ROXICODONE [Concomitant]
     Active Substance: OXYCODONE HYDROCHLORIDE
     Dosage: 5 MG, UNK
  12. OXYCODONE [Concomitant]
     Active Substance: OXYCODONE
     Indication: FIBROMYALGIA
  13. LYRICA [Suspect]
     Active Substance: PREGABALIN
     Indication: DIABETIC NEUROPATHY
     Dosage: 100 MG, 4X/DAY
     Dates: start: 2007
  14. CATAFLAM [Concomitant]
     Active Substance: DICLOFENAC POTASSIUM
     Dosage: 50 MG, UNK
  15. OXYIR [Concomitant]
     Active Substance: OXYCODONE HYDROCHLORIDE
     Dosage: 5 MG, UNK
  16. AMBIEN [Concomitant]
     Active Substance: ZOLPIDEM TARTRATE
     Dosage: 10 MG, UNK
  17. OXYCODONE HCL/ OXYCODON TER/ASA [Concomitant]
     Dosage: UNK
     Route: 048
  18. OXYCODONE [Concomitant]
     Active Substance: OXYCODONE
     Indication: NEUROPATHY PERIPHERAL
     Dosage: 5 MG, UNK(6 TIMES DAILY)
     Dates: start: 2004
  19. KLONOPIN [Concomitant]
     Active Substance: CLONAZEPAM
     Dosage: 0.5 MG, UNK
  20. VOLTAREN [Concomitant]
     Active Substance: DICLOFENAC SODIUM
     Indication: ARTHRALGIA
     Dosage: 1 %, UNK

REACTIONS (7)
  - Disease progression [Not Recovered/Not Resolved]
  - Tooth disorder [Recovered/Resolved]
  - Muscular weakness [Unknown]
  - Fall [Recovering/Resolving]
  - Arthralgia [Unknown]
  - Neuropathy peripheral [Not Recovered/Not Resolved]
  - Balance disorder [Unknown]

NARRATIVE: CASE EVENT DATE: 201602
